FAERS Safety Report 14397056 (Version 1)
Quarter: 2018Q1

REPORT INFORMATION
  Report Type: Spontaneous
  Country: US (occurrence: US)
  Receive Date: 20180116
  Receipt Date: 20180116
  Transmission Date: 20180509
  Serious: No
  Sender: FDA-Public Use
  Company Number: US-ALLERGAN-1748484US

PATIENT
  Sex: Female
  Weight: 77.98 kg

DRUGS (3)
  1. BOTOX [Suspect]
     Active Substance: ONABOTULINUMTOXINA
     Indication: MIGRAINE
     Dosage: 3-4 VIALS, SINGLE
     Route: 030
     Dates: start: 2016, end: 2016
  2. BOTOX [Suspect]
     Active Substance: ONABOTULINUMTOXINA
     Dosage: SINGLE
     Route: 030
     Dates: start: 201612, end: 201612
  3. BOTOX [Suspect]
     Active Substance: ONABOTULINUMTOXINA
     Dosage: SINGLE
     Route: 030
     Dates: start: 201706, end: 201706

REACTIONS (2)
  - Drug ineffective [Unknown]
  - Injection site discomfort [Unknown]
